FAERS Safety Report 6654740-4 (Version None)
Quarter: 2010Q1

REPORT INFORMATION
  Report Type: 
  Country: None (occurrence: None)
  Receive Date: 20100326
  Receipt Date: 20100319
  Transmission Date: 20100710
  Serious: Yes (Hospitalization)
  Sender: FDA-Public Use
  Company Number: FR-WATSON-2010-03343

PATIENT

DRUGS (4)
  1. ACEBUTOLOL HYDROCHLORIDE (WATSON LABORATORIES) [Suspect]
     Indication: INTENTIONAL OVERDOSE
     Dosage: 10 G, SINGLE
     Route: 048
  2. ALPRAZOLAM [Suspect]
     Indication: INTENTIONAL OVERDOSE
     Dosage: 10 MG, SINGLE
     Route: 048
  3. MEPROBAMATE [Suspect]
     Indication: INTENTIONAL OVERDOSE
     Dosage: 4 G, SINGLE
     Route: 048
  4. ASPIRIN [Suspect]
     Indication: INTENTIONAL OVERDOSE
     Dosage: 51 G, SINGLE
     Route: 048

REACTIONS (3)
  - CARDIAC ARREST [None]
  - CARDIOGENIC SHOCK [None]
  - OVERDOSE [None]
